FAERS Safety Report 6755533-X (Version None)
Quarter: 2010Q2

REPORT INFORMATION
  Report Type: 
  Country: None (occurrence: None)
  Receive Date: 20100604
  Receipt Date: 20100602
  Transmission Date: 20101027
  Serious: Yes (Life-Threatening)
  Sender: FDA-Public Use
  Company Number: US-B.I. PHARMACEUTICALS,INC./RIDGEFIELD-2010-BP-06265BP

PATIENT
  Sex: Female

DRUGS (1)
  1. TWYNSTA [Suspect]

REACTIONS (1)
  - ANGIOEDEMA [None]
